FAERS Safety Report 4884389-5 (Version None)
Quarter: 2006Q1

REPORT INFORMATION
  Report Type: 
  Country: None (occurrence: None)
  Receive Date: 20060117
  Receipt Date: 20060117
  Transmission Date: 20060701
  Serious: Yes (Hospitalization)
  Sender: FDA-Public Use
  Company Number: None

PATIENT
  Age: 32 Year
  Sex: Female

DRUGS (4)
  1. LISINOPRIL [Suspect]
     Indication: HYPERTENSION
     Dosage: 30 MG QD PO
     Route: 048
     Dates: start: 20040501, end: 20041201
  2. CLARITIN [Concomitant]
  3. FLONASE [Concomitant]
  4. BENADRYL [Concomitant]

REACTIONS (4)
  - GASTROINTESTINAL OEDEMA [None]
  - LACRIMATION INCREASED [None]
  - SWELLING FACE [None]
  - VOMITING [None]
